FAERS Safety Report 22343671 (Version 2)
Quarter: 2023Q4

REPORT INFORMATION
  Report Type: Spontaneous
  Country: ES (occurrence: ES)
  Receive Date: 20230519
  Receipt Date: 20231026
  Transmission Date: 20240109
  Serious: Yes (Life-Threatening, Hospitalization)
  Sender: FDA-Public Use
  Company Number: ES-AEMPS-1320695

PATIENT
  Age: 72 Year
  Sex: Male

DRUGS (8)
  1. ALLOPURINOL [Suspect]
     Active Substance: ALLOPURINOL
     Indication: Prophylaxis
     Dosage: 300MG, 1 ONCE A DAY
     Route: 048
     Dates: start: 20221205, end: 20230103
  2. RITUXIMAB [Suspect]
     Active Substance: RITUXIMAB
     Indication: Non-Hodgkin^s lymphoma
     Dosage: 375MG/M2 CYCLE 1 IV DAYS 5,12,19 .12.22
     Route: 040
     Dates: start: 20221205, end: 20221219
  3. REVLIMID [Suspect]
     Active Substance: LENALIDOMIDE
     Indication: Non-Hodgkin^s lymphoma
     Dosage: 15 MILLIGRAM, DAILY
     Route: 048
     Dates: start: 20221212, end: 20221218
  4. REVLIMID [Suspect]
     Active Substance: LENALIDOMIDE
     Dosage: 10 MILLIGRAM, DAILY
     Route: 048
     Dates: start: 20221205, end: 20221211
  5. REVLIMID [Suspect]
     Active Substance: LENALIDOMIDE
     Dosage: 20 MILLIGRAM, DAILY
     Route: 048
     Dates: start: 20221219, end: 20221225
  6. SULFAMETHOXAZOLE\TRIMETHOPRIM [Concomitant]
     Active Substance: SULFAMETHOXAZOLE\TRIMETHOPRIM
     Indication: Prophylaxis
     Dosage: 160MG/800MG, 3 TIMES A WEEK
     Route: 048
     Dates: start: 20160601, end: 20230103
  7. OMEPRAZOLE [Concomitant]
     Active Substance: OMEPRAZOLE
     Indication: Prophylaxis
     Dosage: 20 MG, 1 ONCE A DAY
     Route: 048
     Dates: start: 20160601, end: 20230103
  8. ACYCLOVIR [Concomitant]
     Active Substance: ACYCLOVIR
     Indication: Prophylaxis
     Dosage: 1 COMPRIMIDO, 1 ONCE A DAY
     Route: 048
     Dates: start: 20160601, end: 20230103

REACTIONS (1)
  - Toxic epidermal necrolysis [Recovered/Resolved]

NARRATIVE: CASE EVENT DATE: 20221224
